FAERS Safety Report 15110390 (Version 1)
Quarter: 2018Q3

REPORT INFORMATION
  Report Type: Spontaneous
  Country: IT (occurrence: IT)
  Receive Date: 20180705
  Receipt Date: 20180705
  Transmission Date: 20181010
  Serious: Yes (Hospitalization)
  Sender: FDA-Public Use
  Company Number: PHHY2018IT035841

PATIENT
  Age: 49 Year
  Sex: Male

DRUGS (4)
  1. DELTACORTENE [Suspect]
     Active Substance: PREDNISONE
     Indication: CLUSTER HEADACHE
     Dosage: 75 MG, QD
     Route: 048
     Dates: start: 20171201, end: 20180307
  2. PARIET [Concomitant]
     Active Substance: RABEPRAZOLE SODIUM
     Indication: PRODUCT USED FOR UNKNOWN INDICATION
     Dosage: UNK
     Route: 065
  3. TOPAMAX [Concomitant]
     Active Substance: TOPIRAMATE
     Indication: PRODUCT USED FOR UNKNOWN INDICATION
     Dosage: UNK
     Route: 065
  4. SUMATRIPTAN. [Suspect]
     Active Substance: SUMATRIPTAN
     Indication: CLUSTER HEADACHE
     Dosage: 8 DF, QD
     Route: 058
     Dates: start: 20171201, end: 20180307

REACTIONS (6)
  - Drug abuse [Recovering/Resolving]
  - Headache [Recovering/Resolving]
  - Cushingoid [Recovering/Resolving]
  - Leukocytosis [Recovering/Resolving]
  - Drug resistance [Recovering/Resolving]
  - Depression [Recovering/Resolving]

NARRATIVE: CASE EVENT DATE: 20180307
